FAERS Safety Report 6488265-6 (Version None)
Quarter: 2009Q4

REPORT INFORMATION
  Report Type: 
  Country: None (occurrence: None)
  Receive Date: 20091123
  Receipt Date: 20090821
  Transmission Date: 20100525
  Serious: No
  Sender: FDA-Public Use
  Company Number: 8050796

PATIENT
  Age: 36 Year
  Sex: Female
  Weight: 59.8 kg

DRUGS (15)
  1. CIMZIA [Suspect]
     Indication: CROHN'S DISEASE
     Dosage: 400 MG SC
     Route: 058
     Dates: start: 20090814
  2. AMBIEN [Concomitant]
  3. ATIVAN [Concomitant]
  4. LOESTRIN 1.5/30 [Concomitant]
  5. ZYRTEC [Concomitant]
  6. NASONEX [Concomitant]
  7. SOMA [Concomitant]
  8. FLUCONAZOLE [Concomitant]
  9. PROTOPIC [Concomitant]
  10. FLUOCINONIDE [Concomitant]
  11. DESONIDE [Concomitant]
  12. EPIPEN [Concomitant]
  13. MULTI-VITAMIN [Concomitant]
  14. AIRBORNE [Concomitant]
  15. VITAMIN C [Concomitant]

REACTIONS (9)
  - DRY EYE [None]
  - DRY SKIN [None]
  - ECZEMA WEEPING [None]
  - FEELING ABNORMAL [None]
  - GENITAL PAIN [None]
  - INSOMNIA [None]
  - LIP SWELLING [None]
  - PRURITUS [None]
  - RASH [None]
